FAERS Safety Report 6299304-X (Version None)
Quarter: 2009Q3

REPORT INFORMATION
  Report Type: 
  Country: None (occurrence: None)
  Receive Date: 20090806
  Receipt Date: 20090731
  Transmission Date: 20100115
  Serious: Yes (Other)
  Sender: FDA-Public Use
  Company Number: DE-AMGEN-UK352427

PATIENT
  Sex: Female
  Weight: 58 kg

DRUGS (10)
  1. MIMPARA [Suspect]
     Indication: HYPERPARATHYROIDISM SECONDARY
     Route: 048
     Dates: start: 20060501
  2. PARICALCITOL [Concomitant]
     Route: 065
     Dates: start: 20070701
  3. TORSEMIDE [Concomitant]
     Route: 065
     Dates: start: 20090525
  4. ENALAPRIL MALEATE [Concomitant]
     Route: 065
     Dates: start: 20090415
  5. METOPROLOL SUCCINATE [Concomitant]
     Route: 065
     Dates: start: 20090601
  6. SIMVASTATIN [Concomitant]
     Route: 065
     Dates: start: 20050928
  7. ALLOPURINOL [Concomitant]
     Route: 065
     Dates: start: 20040705
  8. GABAPENTIN [Concomitant]
     Route: 065
     Dates: start: 20070606
  9. RENAGEL [Concomitant]
     Route: 065
     Dates: start: 20090519
  10. CALCIUM CARBONATE [Concomitant]

REACTIONS (8)
  - AORTIC STENOSIS [None]
  - CALCIPHYLAXIS [None]
  - DIARRHOEA [None]
  - GASTROINTESTINAL VIRAL INFECTION [None]
  - HYPERTENSIVE CRISIS [None]
  - NAUSEA [None]
  - TRANSAMINASES INCREASED [None]
  - VOMITING [None]
